FAERS Safety Report 12586474 (Version 1)
Quarter: 2016Q3

REPORT INFORMATION
  Report Type: Spontaneous
  Country: US (occurrence: None)
  Receive Date: 20160722
  Receipt Date: 20160722
  Transmission Date: 20161109
  Serious: No
  Sender: FDA-Public Use
  Company Number: None

PATIENT
  Age: 34 Year
  Sex: Female
  Weight: 65.77 kg

DRUGS (4)
  1. LAMICTAL [Concomitant]
     Active Substance: LAMOTRIGINE
  2. MIRVASO [Suspect]
     Active Substance: BRIMONIDINE TARTRATE
     Indication: ROSACEA
     Dosage: IN THE MORNING APPLIED TO A SURFACE, USUALLY THE SKIN
     Route: 061
     Dates: start: 20160716, end: 20160716
  3. NUVIGIL [Concomitant]
     Active Substance: ARMODAFINIL
  4. SOOLANTRA [Concomitant]
     Active Substance: IVERMECTIN

REACTIONS (8)
  - Feeling hot [None]
  - Fatigue [None]
  - Pruritus [None]
  - Oropharyngeal pain [None]
  - Erythema [None]
  - Blood pressure fluctuation [None]
  - Rash pustular [None]
  - Dizziness [None]

NARRATIVE: CASE EVENT DATE: 20160720
